FAERS Safety Report 17247160 (Version 2)
Quarter: 2020Q1

REPORT INFORMATION
  Report Type: Spontaneous
  Country: US (occurrence: US)
  Receive Date: 20200108
  Receipt Date: 20200213
  Transmission Date: 20200409
  Serious: No
  Sender: FDA-Public Use
  Company Number: US-PFIZER INC-2020006237

PATIENT
  Sex: Female

DRUGS (1)
  1. LIDOCAINE HCL [Suspect]
     Active Substance: LIDOCAINE HYDROCHLORIDE
     Dosage: 20 ML, FLIPTOP VIAL

REACTIONS (2)
  - Skin laceration [Unknown]
  - Product container issue [Unknown]

NARRATIVE: CASE EVENT DATE: 20200103
